FAERS Safety Report 5611632-7 (Version None)
Quarter: 2008Q1

REPORT INFORMATION
  Report Type: 
  Country: None (occurrence: None)
  Receive Date: 20080201
  Receipt Date: 20080123
  Transmission Date: 20080703
  Serious: Yes (Hospitalization, Other)
  Sender: FDA-Public Use
  Company Number: FR-ABBOTT-08P-056-0435027-00

PATIENT
  Sex: Female

DRUGS (17)
  1. DEPAKENE [Suspect]
     Indication: EPILEPSY
     Route: 048
     Dates: start: 20050101, end: 20071026
  2. PROPOFOL [Suspect]
     Indication: ANAESTHESIA
     Route: 042
     Dates: start: 20070927, end: 20070927
  3. PROPOFOL [Suspect]
     Route: 042
     Dates: start: 20071017, end: 20071017
  4. DIAZEPAM [Concomitant]
     Indication: EPILEPSY
     Route: 048
  5. SUFENTANIL CITRATE [Concomitant]
     Indication: ANAESTHESIA
     Dosage: 35 MCG/H
     Route: 042
     Dates: start: 20070927, end: 20070927
  6. MIDAZOLAM HYDROCHLORIDE [Concomitant]
     Indication: ANAESTHESIA
     Dosage: 42 MCG/KG/H
     Route: 042
     Dates: start: 20070927, end: 20070927
  7. MIDAZOLAM HYDROCHLORIDE [Concomitant]
     Indication: POSTOPERATIVE ANALGESIA
     Route: 042
     Dates: start: 20070927
  8. SEVOFLURANE [Concomitant]
     Indication: ANAESTHESIA
     Route: 055
     Dates: start: 20070927, end: 20070927
  9. DESFLURANE [Concomitant]
     Indication: ANAESTHESIA
     Route: 055
     Dates: start: 20070927, end: 20070927
  10. EPHEDRINE [Concomitant]
     Indication: ANAESTHESIA
     Route: 042
     Dates: start: 20070927, end: 20070927
  11. TRANEXAMIC ACID [Concomitant]
     Indication: ANAESTHESIA
     Route: 065
     Dates: start: 20070927, end: 20070927
  12. PHENYLEPHRINE HYDROCHLORIDE [Concomitant]
     Indication: ANAESTHESIA
     Route: 042
     Dates: start: 20070927, end: 20070927
  13. CEFAZOLIN [Concomitant]
     Indication: ANTIBIOTIC PROPHYLAXIS
     Route: 042
     Dates: start: 20070927
  14. GENTAMICIN [Concomitant]
     Indication: ANTIBIOTIC PROPHYLAXIS
     Route: 042
     Dates: start: 20070927, end: 20071020
  15. MORPHINE [Concomitant]
     Indication: POSTOPERATIVE ANALGESIA
     Dosage: 85 MCG/KG/H
     Route: 042
     Dates: start: 20070927
  16. NABULPHINE [Concomitant]
     Indication: POSTOPERATIVE CARE
     Dates: start: 20071017, end: 20071017
  17. CLONAZEPAM [Concomitant]
     Indication: DRUG USE FOR UNKNOWN INDICATION
     Dates: start: 20071026

REACTIONS (9)
  - DRUG LEVEL DECREASED [None]
  - GENERAL PHYSICAL HEALTH DETERIORATION [None]
  - GLUCOSE TOLERANCE IMPAIRED [None]
  - HAEMORRHAGE [None]
  - HYPOKALAEMIA [None]
  - HYPOPHOSPHATAEMIA [None]
  - LUNG DISORDER [None]
  - PANCREATITIS [None]
  - POST PROCEDURAL DISCHARGE [None]
